FAERS Safety Report 5830091-2 (Version None)
Quarter: 2008Q3

REPORT INFORMATION
  Report Type: 
  Country: None (occurrence: None)
  Receive Date: 20080801
  Receipt Date: 20080723
  Transmission Date: 20090109
  Serious: Yes (Other)
  Sender: FDA-Public Use
  Company Number: US-JNJFOC-20080706351

PATIENT
  Sex: Male

DRUGS (1)
  1. DURAGESIC-100 [Suspect]
     Indication: PAIN
     Dosage: 4X 100UG/HR PATCHES
     Route: 062

REACTIONS (3)
  - AMPUTATION [None]
  - INCORRECT DRUG ADMINISTRATION DURATION [None]
  - PERIPHERAL ARTERIAL OCCLUSIVE DISEASE [None]
